FAERS Safety Report 18796571 (Version 1)
Quarter: 2021Q1

REPORT INFORMATION
  Report Type: Report from Study
  Country: US (occurrence: US)
  Receive Date: 20210127
  Receipt Date: 20210127
  Transmission Date: 20210419
  Serious: Yes (Hospitalization, Other)
  Sender: FDA-Public Use
  Company Number: US-BRISTOL-MYERS SQUIBB COMPANY-BMS-2021-007117

PATIENT
  Age: 66 Year
  Sex: Male
  Weight: 94.33 kg

DRUGS (8)
  1. VITAMIN D [COLECALCIFEROL] [Concomitant]
     Active Substance: CHOLECALCIFEROL
     Indication: VITAMIN D DEFICIENCY
     Dosage: 2000 UNIT
     Route: 048
     Dates: start: 202011
  2. GUAIFENESIN. [Concomitant]
     Active Substance: GUAIFENESIN
     Indication: ANTITUSSIVE THERAPY
     Dosage: 100 MG/5 ML
     Route: 048
     Dates: start: 202010
  3. NIVOLUMAB [Suspect]
     Active Substance: NIVOLUMAB
     Indication: NON-SMALL CELL LUNG CANCER
     Dosage: 420 MILLIGRAM
     Route: 042
     Dates: start: 20191104, end: 20201203
  4. LISINOPRIL. [Concomitant]
     Active Substance: LISINOPRIL
     Indication: PROPHYLAXIS
     Dosage: 10 MILLIGRAM
     Route: 048
     Dates: start: 20200304
  5. TADALAFIL. [Concomitant]
     Active Substance: TADALAFIL
     Indication: ERECTILE DYSFUNCTION
     Dosage: 5 MILLIGRAM, PRN
     Route: 065
     Dates: start: 202011
  6. GABAPENTIN. [Concomitant]
     Active Substance: GABAPENTIN
     Indication: PROCEDURAL PAIN
     Dosage: 300 MILLIGRAM
     Route: 048
     Dates: start: 20201221
  7. METOPROLOL. [Concomitant]
     Active Substance: METOPROLOL
     Indication: PROPHYLAXIS
     Dosage: 12.5 MILLIGRAM, BID
     Route: 065
     Dates: start: 20201222
  8. MAGNESIUM [Concomitant]
     Active Substance: MAGNESIUM
     Indication: MUSCLE SPASMS
     Dosage: 400 MILLIGRAM, PRN
     Route: 065
     Dates: start: 201512

REACTIONS (1)
  - Hypoxia [Not Recovered/Not Resolved]

NARRATIVE: CASE EVENT DATE: 20210121
